FAERS Safety Report 4423757-2 (Version None)
Quarter: 2004Q3

REPORT INFORMATION
  Report Type: 
  Country: None (occurrence: None)
  Receive Date: 20040805
  Receipt Date: 20040723
  Transmission Date: 20050211
  Serious: Yes (Death, Hospitalization, Other)
  Sender: FDA-Public Use
  Company Number: 2004041831

PATIENT
  Age: 82 Year
  Sex: Female
  Weight: 60 kg

DRUGS (3)
  1. VFEND [Suspect]
     Indication: SINUSITIS FUNGAL
     Dosage: 400 MG (200 MG, 2 IN 1 D), INTRAVENOUS
     Route: 042
     Dates: start: 20040604
  2. LINEZOLID (LINEZOLID) [Suspect]
     Indication: ILL-DEFINED DISORDER
  3. UNACID (AMPICILLIN SODIUM, SULBACTAM SODIUM) [Concomitant]

REACTIONS (5)
  - DIALYSIS [None]
  - ENTEROCOCCAL INFECTION [None]
  - RENAL IMPAIRMENT [None]
  - SEPTIC SHOCK [None]
  - THROMBOCYTOPENIA [None]
